FAERS Safety Report 20265592 (Version 1)
Quarter: 2021Q4

REPORT INFORMATION
  Report Type: Spontaneous
  Country: None (occurrence: US)
  Receive Date: 20211231
  Receipt Date: 20211231
  Transmission Date: 20220303
  Serious: No
  Sender: FDA-Public Use
  Company Number: US-GREER Laboratories, Inc.-2123530

PATIENT
  Age: 36 Year
  Sex: Female
  Weight: 153.64 kg

DRUGS (12)
  1. STEMPHYLIUM SOLANI [Suspect]
     Active Substance: STEMPHYLIUM SOLANI
     Indication: Rhinitis allergic
     Route: 060
     Dates: start: 202008
  2. ALLERGENIC EXTRACT- MITE, DERMATOPHAGOIDES FARINAE [Suspect]
     Active Substance: DERMATOPHAGOIDES FARINAE
     Route: 060
     Dates: start: 202008
  3. STANDARDIZED MITE DERMATOPHAGOIDES PTERONYSSINUS [Suspect]
     Active Substance: DERMATOPHAGOIDES PTERONYSSINUS
     Route: 060
     Dates: start: 202008
  4. MOLDS, RUSTS AND SMUTS, ALTERNARIA TENUIS (ALTERNATA) [Suspect]
     Active Substance: ALTERNARIA ALTERNATA
     Route: 060
     Dates: start: 202008
  5. COCHLIOBOLUS SPICIFER [Suspect]
     Active Substance: COCHLIOBOLUS SPICIFER
     Route: 060
     Dates: start: 202008
  6. HELMINTHOSPORIUM SATIVUM [Suspect]
     Active Substance: COCHLIOBOLUS SATIVUS
     Route: 060
     Dates: start: 202008
  7. GLYCERIN [Suspect]
     Active Substance: GLYCERIN
     Route: 060
     Dates: start: 202008
  8. SINGULAIR [Concomitant]
     Active Substance: MONTELUKAST SODIUM
     Route: 048
  9. FEXOFENADINE HCL [Concomitant]
     Active Substance: FEXOFENADINE HYDROCHLORIDE
     Route: 048
  10. ATENOLOL [Concomitant]
     Active Substance: ATENOLOL
     Route: 048
  11. NEXIUM [Concomitant]
     Active Substance: ESOMEPRAZOLE MAGNESIUM
     Route: 048
  12. LO LOESTRIN FE [Concomitant]
     Active Substance: ETHINYL ESTRADIOL\NORETHINDRONE ACETATE
     Route: 048

REACTIONS (2)
  - Diarrhoea [Recovered/Resolved]
  - Off label use [Recovered/Resolved]

NARRATIVE: CASE EVENT DATE: 20200801
